FAERS Safety Report 13263438 (Version 1)
Quarter: 2017Q1

REPORT INFORMATION
  Report Type: Report from Study
  Country: US (occurrence: US)
  Receive Date: 20170223
  Receipt Date: 20170223
  Transmission Date: 20170428
  Serious: Yes (Other)
  Sender: FDA-Public Use
  Company Number: US-VELOXIS PHARMACEUTICALS-1063500

PATIENT
  Age: 50 Year
  Sex: Female
  Weight: 105.6 kg

DRUGS (26)
  1. AMLODIPINE [Concomitant]
     Active Substance: AMLODIPINE BESYLATE
  2. ASPIRIN. [Concomitant]
     Active Substance: ASPIRIN
  3. HEPARIN [Concomitant]
     Active Substance: HEPARIN SODIUM
  4. MAGNESIUM OXIDE. [Concomitant]
     Active Substance: MAGNESIUM OXIDE
  5. CLONIDINE. [Concomitant]
     Active Substance: CLONIDINE
  6. METOPROLOL. [Concomitant]
     Active Substance: METOPROLOL
  7. MYCOPHENOLATE MOFETIL. [Concomitant]
     Active Substance: MYCOPHENOLATE MOFETIL
  8. PANTOPRAZOLE [Concomitant]
     Active Substance: PANTOPRAZOLE SODIUM
  9. POTASSIUM PHOSPHATE [Concomitant]
     Active Substance: POTASSIUM PHOSPHATE
  10. HYDRALAZINE [Concomitant]
     Active Substance: HYDRALAZINE HYDROCHLORIDE
  11. NYSTATIN. [Concomitant]
     Active Substance: NYSTATIN
  12. VALGANCICLOVIR. [Concomitant]
     Active Substance: VALGANCICLOVIR
  13. ENVARSUS XR [Suspect]
     Active Substance: TACROLIMUS
     Indication: RENAL TRANSPLANT
     Route: 048
     Dates: start: 20161029
  14. HARVONI [Concomitant]
     Active Substance: LEDIPASVIR\SOFOSBUVIR
  15. LABETALOL [Concomitant]
     Active Substance: LABETALOL\LABETALOL HYDROCHLORIDE
  16. ENVARSUS XR [Suspect]
     Active Substance: TACROLIMUS
  17. MYCOPHENOLATE MOFETIL. [Concomitant]
     Active Substance: MYCOPHENOLATE MOFETIL
  18. OXYCODONE [Concomitant]
     Active Substance: OXYCODONE
  19. POTASSIUM CHLORIDE. [Concomitant]
     Active Substance: POTASSIUM CHLORIDE
  20. AMLODIPINE [Concomitant]
     Active Substance: AMLODIPINE BESYLATE
  21. CLONIDINE. [Concomitant]
     Active Substance: CLONIDINE
  22. ONDANSETRON [Concomitant]
     Active Substance: ONDANSETRON
  23. OXYCODONE [Concomitant]
     Active Substance: OXYCODONE
  24. SODIUM CHLORIDE. [Concomitant]
     Active Substance: SODIUM CHLORIDE
  25. DOCUSATE SODIUM. [Concomitant]
     Active Substance: DOCUSATE SODIUM
  26. POTASSIUM CHLORIDE. [Concomitant]
     Active Substance: POTASSIUM CHLORIDE

REACTIONS (7)
  - Constipation [Recovered/Resolved]
  - Pneumonia [Unknown]
  - Cholangiocarcinoma [Recovered/Resolved with Sequelae]
  - Supraventricular tachycardia [Recovered/Resolved]
  - Pulmonary oedema [Unknown]
  - Immunosuppressant drug level increased [Unknown]
  - Dyspnoea [Recovered/Resolved]
